FAERS Safety Report 8924412 (Version 1)
Quarter: 2012Q4

REPORT INFORMATION
  Report Type: Spontaneous
  Country: US (occurrence: None)
  Receive Date: 20121121
  Receipt Date: 20121121
  Transmission Date: 20130627
  Serious: Yes (Hospitalization)
  Sender: FDA-Public Use
  Company Number: None

PATIENT
  Age: 62 Year
  Sex: Female
  Weight: 59.88 kg

DRUGS (14)
  1. REVLIMID [Suspect]
  2. VELCADE [Suspect]
  3. DEXAMETHASONE [Suspect]
  4. ACTIGALL [Concomitant]
  5. ACYCLOVIR [Concomitant]
  6. ASPIRIN [Concomitant]
  7. ATIVAN [Concomitant]
  8. COMPAZINE [Concomitant]
  9. LACTULOSE [Concomitant]
  10. OMEPRAZOLE [Concomitant]
  11. ONDANSETRON HCL [Concomitant]
  12. OXYCODONE [Concomitant]
  13. PREDNISONE [Concomitant]
  14. VALTREX [Concomitant]

REACTIONS (1)
  - Chest pain [None]
